FAERS Safety Report 5176816-3 (Version None)
Quarter: 2006Q4

REPORT INFORMATION
  Report Type: 
  Country: None (occurrence: None)
  Receive Date: 20061218
  Receipt Date: 20061208
  Transmission Date: 20070319
  Serious: Yes (Other)
  Sender: FDA-Public Use
  Company Number: GB-AMGEN-UK202986

PATIENT

DRUGS (1)
  1. NEUPOGEN [Suspect]
     Route: 065

REACTIONS (2)
  - INJECTION SITE INJURY [None]
  - SKIN INJURY [None]
